FAERS Safety Report 10201877 (Version 1)
Quarter: 2014Q2

REPORT INFORMATION
  Report Type: Spontaneous
  Country: US (occurrence: US)
  Receive Date: 20140528
  Receipt Date: 20140528
  Transmission Date: 20141212
  Serious: No
  Sender: FDA-Public Use
  Company Number: US-BRISTOL-MYERS SQUIBB COMPANY-19575521

PATIENT
  Age: 70 Year
  Sex: Male
  Weight: 90.7 kg

DRUGS (4)
  1. ONGLYZA TABS 5 MG [Suspect]
     Indication: DIABETES MELLITUS
  2. METFORMIN HCL TABS [Interacting]
     Indication: DIABETES MELLITUS
     Route: 048
  3. POTASSIUM [Interacting]
     Indication: CARDIAC DISORDER
  4. VIAGRA [Interacting]
     Indication: ERECTILE DYSFUNCTION
     Dosage: INC TO 100MG, 150MG-2013
     Dates: start: 201308

REACTIONS (2)
  - Blood glucose increased [Unknown]
  - Drug interaction [Unknown]
